FAERS Safety Report 24749228 (Version 1)
Quarter: 2024Q4

REPORT INFORMATION
  Report Type: Spontaneous
  Country: DE (occurrence: DE)
  Receive Date: 20241218
  Receipt Date: 20241218
  Transmission Date: 20250114
  Serious: Yes (Other)
  Sender: DR REDDYS
  Company Number: None

PATIENT
  Age: 21 Year
  Sex: Male

DRUGS (5)
  1. QUETIAPINE [Suspect]
     Active Substance: QUETIAPINE
     Indication: Product used for unknown indication
     Route: 048
     Dates: start: 20240202, end: 20240205
  2. MIRTAZAPINE [Suspect]
     Active Substance: MIRTAZAPINE
     Indication: Product used for unknown indication
     Dosage: B.A.W.
     Route: 048
     Dates: start: 20240130
  3. ZUCLOPENTHIXOL [Suspect]
     Active Substance: ZUCLOPENTHIXOL
     Indication: Product used for unknown indication
     Route: 030
     Dates: start: 20240202
  4. DIAZEPAM [Concomitant]
     Active Substance: DIAZEPAM
     Indication: Product used for unknown indication
     Dosage: WEITERHIN BEI BEDARF
     Route: 048
     Dates: start: 20240205
  5. Lorazepam 4 mg [Concomitant]
     Indication: Product used for unknown indication
     Route: 048
     Dates: start: 20240128, end: 20240212

REACTIONS (6)
  - Dyskinesia [Recovered/Resolved]
  - Dystonia [Recovered/Resolved]
  - Dyskinesia [Recovered/Resolved]
  - Torticollis [Recovered/Resolved]
  - Dysphagia [Recovered/Resolved]
  - Drug interaction [Unknown]

NARRATIVE: CASE EVENT DATE: 20240205
